FAERS Safety Report 9559519 (Version 1)
Quarter: 2013Q2

REPORT INFORMATION
  Report Type: Spontaneous
  Country: US (occurrence: None)
  Receive Date: 20130617
  Receipt Date: 20130617
  Transmission Date: 20140414
  Serious: Yes (Other)
  Sender: FDA-Public Use
  Company Number: EUS-2013-00273

PATIENT
  Age: 2 Year
  Sex: Female
  Weight: 13.5 kg

DRUGS (6)
  1. ERWINASE (ASPARAGINASE) [Suspect]
     Indication: ACUTE LYMPHOCYTIC LEUKAEMIA
     Dates: start: 20130503, end: 20130503
  2. VINCRISTINE (VINCRISTINE) (UNKNOWN) [Concomitant]
  3. DOXORUBICIN (DOXORUBICIN) (DOXORUBICIN) [Concomitant]
  4. ONDANSETRON (ONDANSETRON) [Concomitant]
  5. COTRIMOXAZOLE (SULFAMETHOXAZOLE) [Concomitant]
  6. NYSTATIN (NYSTATIN) [Concomitant]

REACTIONS (4)
  - Oedema genital [None]
  - Oedema genital [None]
  - Urticaria [None]
  - Eyelid oedema [None]
